FAERS Safety Report 8719534 (Version 3)
Quarter: 2013Q1

REPORT INFORMATION
  Report Type: Spontaneous
  Country: GB (occurrence: GB)
  Receive Date: 20120813
  Receipt Date: 20130102
  Transmission Date: 20140127
  Serious: Yes (Death)
  Sender: FDA-Public Use
  Company Number: GB-JNJFOC-20120803991

PATIENT
  Age: 12 Year
  Sex: Male

DRUGS (1)
  1. TRAMADOL HYDROCHLORIDE [Suspect]
     Indication: PRODUCT USED FOR UNKNOWN INDICATION
     Route: 065

REACTIONS (2)
  - Toxicity to various agents [Fatal]
  - Analgesic drug level increased [Fatal]
